FAERS Safety Report 7941608-6 (Version None)
Quarter: 2011Q4

REPORT INFORMATION
  Report Type: 
  Country: None (occurrence: None)
  Receive Date: 20111122
  Receipt Date: 20111122
  Transmission Date: 20120403
  Serious: No
  Sender: FDA-Public Use
  Company Number: None

PATIENT
  Sex: Female
  Weight: 50 kg

DRUGS (2)
  1. CARBOPLATIN [Suspect]
     Dosage: 583.2 MG
  2. TAXOL [Suspect]
     Dosage: 263 MG

REACTIONS (2)
  - REFUSAL OF TREATMENT BY PATIENT [None]
  - NEUTROPENIA [None]
